FAERS Safety Report 18268973 (Version 1)
Quarter: 2020Q3

REPORT INFORMATION
  Report Type: Spontaneous
  Country: SE (occurrence: SE)
  Receive Date: 20200915
  Receipt Date: 20200915
  Transmission Date: 20201103
  Serious: Yes (Life-Threatening, Hospitalization)
  Sender: FDA-Public Use
  Company Number: SE-SAMSUNG BIOEPIS-SB-2020-28566

PATIENT
  Age: 30 Year
  Sex: Female
  Weight: 88 kg

DRUGS (1)
  1. IMRALDI [Suspect]
     Active Substance: ADALIMUMAB
     Indication: RHEUMATOID ARTHRITIS
     Dosage: UNKNOWN (1 SYRINGE EVERY 14 DAYS)
     Route: 065
     Dates: start: 20191001, end: 20191221

REACTIONS (6)
  - Tenderness [Recovered/Resolved]
  - Pyelonephritis [Recovered/Resolved]
  - Arthralgia [Recovered/Resolved]
  - Asthenia [Recovered/Resolved]
  - Pyrexia [Recovered/Resolved]
  - Bacteraemia [Recovered/Resolved]

NARRATIVE: CASE EVENT DATE: 2019
